FAERS Safety Report 4655882-5 (Version None)
Quarter: 2005Q2

REPORT INFORMATION
  Report Type: 
  Country: None (occurrence: None)
  Receive Date: 20050505
  Receipt Date: 20050505
  Transmission Date: 20051028
  Serious: Yes (Other)
  Sender: FDA-Public Use
  Company Number: None

PATIENT
  Sex: Male
  Weight: 74.8435 kg

DRUGS (1)
  1. WARFARIN SODIUM [Suspect]
     Indication: INTRACARDIAC THROMBUS

REACTIONS (1)
  - THERAPEUTIC RESPONSE DECREASED [None]
